FAERS Safety Report 16238115 (Version 2)
Quarter: 2019Q2

REPORT INFORMATION
  Report Type: Spontaneous
  Country: US (occurrence: US)
  Receive Date: 20190425
  Receipt Date: 20190507
  Transmission Date: 20190711
  Serious: Yes (Other)
  Sender: FDA-Public Use
  Company Number: US-RISING PHARMACEUTICALS, INC.-2019RIS00208

PATIENT
  Age: 63 Year
  Sex: Female
  Weight: 55.78 kg

DRUGS (16)
  1. DIAZEPAM. [Concomitant]
     Active Substance: DIAZEPAM
     Dosage: 7.5 MG, 1X/DAY, AT BEDTIME
  2. ASTELIN [Concomitant]
     Active Substance: AZELASTINE HYDROCHLORIDE
  3. NASONEX [Concomitant]
     Active Substance: MOMETASONE FUROATE
  4. VAGIFEM [Concomitant]
     Active Substance: ESTRADIOL
  5. ZILEUTON. [Suspect]
     Active Substance: ZILEUTON
     Indication: ASTHMA
     Dosage: 1200 MG, 2X/DAY WITH BREAKFAST AND DINNER
     Route: 048
     Dates: start: 2015, end: 2017
  6. MULTIVITAMIN [Concomitant]
     Active Substance: VITAMINS
  7. RANITIDINE. [Concomitant]
     Active Substance: RANITIDINE
  8. FLOVENT [Concomitant]
     Active Substance: FLUTICASONE PROPIONATE
     Dosage: UNK, AS NEEDED
  9. CROMOLYN SODIUM. [Concomitant]
     Active Substance: CROMOLYN SODIUM
     Dosage: 15 MG, 4X/DAY
  10. SPIRULINA [Concomitant]
     Active Substance: SPIRULINA
  11. ALBUTEROL. [Concomitant]
     Active Substance: ALBUTEROL
  12. ZILEUTON. [Suspect]
     Active Substance: ZILEUTON
     Indication: ASPIRIN-EXACERBATED RESPIRATORY DISEASE
     Dosage: 1200 MG, 2X/DAY WITH BREAKFAST AND DINNER
     Route: 048
     Dates: start: 20190408
  13. NUCALA [Suspect]
     Active Substance: MEPOLIZUMAB
     Dosage: UNK
     Dates: start: 2017, end: 201809
  14. FASENRA [Concomitant]
     Active Substance: BENRALIZUMAB
     Dosage: UNK, 6X/YEAR (EVERY OTHER MONTH)
     Dates: start: 201810
  15. CALCIUM CITRATE [Concomitant]
     Active Substance: CALCIUM CITRATE
  16. LORATADINE. [Concomitant]
     Active Substance: LORATADINE

REACTIONS (23)
  - Pneumonia [Unknown]
  - Fatigue [Unknown]
  - Hypersensitivity [Unknown]
  - Rash [Recovered/Resolved]
  - Lung disorder [Unknown]
  - Throat tightness [Unknown]
  - Malaise [Unknown]
  - Cough [Unknown]
  - Rhinitis [Unknown]
  - Pruritus [Recovered/Resolved]
  - Eosinophilic pneumonia [Unknown]
  - Rash erythematous [Recovered/Resolved]
  - Oedema [Unknown]
  - Urticaria [Unknown]
  - Insomnia [Unknown]
  - Asthma [Recovering/Resolving]
  - Chest pain [Unknown]
  - Nausea [Unknown]
  - Unevaluable event [Unknown]
  - Pharyngeal oedema [Unknown]
  - Anaphylactic reaction [Recovered/Resolved]
  - Eosinophilia [Recovered/Resolved]
  - Pleurisy [Unknown]

NARRATIVE: CASE EVENT DATE: 201705
